FAERS Safety Report 16274482 (Version 3)
Quarter: 2020Q4

REPORT INFORMATION
  Report Type: Spontaneous
  Country: JP (occurrence: JP)
  Receive Date: 20190504
  Receipt Date: 20201028
  Transmission Date: 20210113
  Serious: Yes (Other)
  Sender: FDA-Public Use
  Company Number: JP-TEVA-2019-JP-1045995

PATIENT
  Age: 65 Year
  Sex: Female

DRUGS (6)
  1. BENDAMUSTINE HYDROCHLORIDE. [Suspect]
     Active Substance: BENDAMUSTINE HYDROCHLORIDE
     Dosage: (CYCLE 2)
     Route: 042
     Dates: start: 201807
  2. RITUXIMAB. [Concomitant]
     Active Substance: RITUXIMAB
     Dosage: (CYCLE 2)
     Route: 041
     Dates: start: 201807
  3. RITUXIMAB. [Concomitant]
     Active Substance: RITUXIMAB
     Route: 041
     Dates: start: 201809
  4. BENDAMUSTINE HYDROCHLORIDE. [Suspect]
     Active Substance: BENDAMUSTINE HYDROCHLORIDE
     Indication: LYMPHOMA
     Dosage: (CYCLE 1)
     Route: 042
     Dates: start: 201805
  5. BENDAMUSTINE HYDROCHLORIDE. [Suspect]
     Active Substance: BENDAMUSTINE HYDROCHLORIDE
     Dosage: 90 MG/M2X1/DAY,
     Route: 042
     Dates: start: 20180920, end: 20180921
  6. RITUXIMAB. [Concomitant]
     Active Substance: RITUXIMAB
     Indication: LYMPHOMA
     Dosage: (CYCLE 1)
     Route: 041
     Dates: start: 201805

REACTIONS (6)
  - Cytomegalovirus enterocolitis [Recovered/Resolved]
  - Diarrhoea [Unknown]
  - Colitis ulcerative [Unknown]
  - Campylobacter gastroenteritis [Recovered/Resolved]
  - Pyrexia [Unknown]
  - Product use in unapproved indication [Unknown]

NARRATIVE: CASE EVENT DATE: 201805
